FAERS Safety Report 5334229-5 (Version None)
Quarter: 2007Q2

REPORT INFORMATION
  Report Type: 
  Country: None (occurrence: None)
  Receive Date: 20070525
  Receipt Date: 20060522
  Transmission Date: 20071010
  Serious: No
  Sender: FDA-Public Use
  Company Number: A0606528A

PATIENT
  Age: 48 Year
  Sex: Female

DRUGS (4)
  1. BACTROBAN [Suspect]
     Indication: SKIN INFECTION
     Route: 061
     Dates: start: 20060521
  2. INSULIN [Concomitant]
  3. NORVASC [Concomitant]
  4. ASPIRIN [Concomitant]

REACTIONS (3)
  - HYPERSENSITIVITY [None]
  - PARAESTHESIA ORAL [None]
  - THROAT IRRITATION [None]
